FAERS Safety Report 23405661 (Version 1)
Quarter: 2024Q1

REPORT INFORMATION
  Report Type: Spontaneous
  Country: US (occurrence: None)
  Receive Date: 20240113
  Receipt Date: 20240113
  Transmission Date: 20240410
  Serious: Yes (Other)
  Sender: FDA-Public Use
  Company Number: None

PATIENT
  Age: 52 Year
  Sex: Male
  Weight: 81.9 kg

DRUGS (2)
  1. MOUNJARO [Suspect]
     Active Substance: TIRZEPATIDE
     Indication: Obesity
     Dates: start: 20230127
  2. MOUNJARO [Suspect]
     Active Substance: TIRZEPATIDE
     Indication: Off label use

REACTIONS (5)
  - Arthralgia [None]
  - Bursitis [None]
  - Weight decreased [None]
  - Tendon calcification [None]
  - Upper respiratory tract infection [None]

NARRATIVE: CASE EVENT DATE: 20230131
